FAERS Safety Report 18663287 (Version 2)
Quarter: 2021Q1

REPORT INFORMATION
  Report Type: Spontaneous
  Country: US (occurrence: US)
  Receive Date: 20201224
  Receipt Date: 20210127
  Transmission Date: 20210419
  Serious: Yes (Hospitalization)
  Sender: FDA-Public Use
  Company Number: US-TEVA-2020-US-1860419

PATIENT
  Age: 17 Year
  Sex: Female

DRUGS (25)
  1. DIVALPROEX?ER [Concomitant]
     Indication: SCHIZOAFFECTIVE DISORDER BIPOLAR TYPE
     Dosage: 500 MILLIGRAM DAILY; 500MG EVERY NIGHT AT BEDTIME.
     Route: 065
  2. METFORMIN [Concomitant]
     Active Substance: METFORMIN HYDROCHLORIDE
     Indication: PROPHYLAXIS
     Dosage: 500 MILLIGRAM DAILY;
     Route: 065
  3. NAPROXEN. [Concomitant]
     Active Substance: NAPROXEN
     Indication: PAIN
     Dosage: AS NEEDED FOR PAIN
     Route: 065
  4. RISPERIDONE. [Suspect]
     Active Substance: RISPERIDONE
     Dosage: RISPERIDONE WAS FURTHER INCREASED TO 3 MG DAILY AND 4 MG AT BEDTIME.
     Route: 065
  5. LORAZEPAM. [Concomitant]
     Active Substance: LORAZEPAM
     Indication: SCHIZOAFFECTIVE DISORDER
     Dosage: RECEIVED ADDITIONAL DOSES ON ADMISSION
     Route: 030
  6. RISPERIDONE. [Suspect]
     Active Substance: RISPERIDONE
     Dosage: 6 MILLIGRAM DAILY; GRADUALLY INCREASED TO 3 MG TWICE A DAY
     Route: 065
  7. LORAZEPAM. [Concomitant]
     Active Substance: LORAZEPAM
     Indication: CATATONIA
     Dosage: 2 MILLIGRAM DAILY;
     Route: 065
  8. RISPERIDONE. [Suspect]
     Active Substance: RISPERIDONE
     Dosage: 4 MILLIGRAM DAILY;
     Route: 065
  9. LURASIDONE [Suspect]
     Active Substance: LURASIDONE
     Indication: SCHIZOAFFECTIVE DISORDER
     Dosage: 40 MILLIGRAM DAILY;
     Route: 065
  10. CLOZAPINE. [Suspect]
     Active Substance: CLOZAPINE
     Indication: SCHIZOAFFECTIVE DISORDER BIPOLAR TYPE
     Dosage: 25 MILLIGRAM DAILY; AT BEDTIME
     Route: 065
  11. DIPHENHYDRAMINE. [Suspect]
     Active Substance: DIPHENHYDRAMINE
     Indication: SCHIZOAFFECTIVE DISORDER
     Dosage: RECEIVED ADDITIONAL DOSES OF LORAZEPAM AND DIPHENHYDRAMINE INTRAMUSCULARLY ON ADMISSION
     Route: 030
  12. CLOZAPINE. [Suspect]
     Active Substance: CLOZAPINE
     Dosage: 200 MILLIGRAM DAILY; CLOZAPINE WAS TITRATED SLOWLY UPWARD AS TOLERATED
     Route: 065
  13. RISPERIDONE. [Suspect]
     Active Substance: RISPERIDONE
     Indication: SCHIZOAFFECTIVE DISORDER
     Dosage: 2 MILLIGRAM DAILY;
     Route: 065
  14. LORAZEPAM. [Concomitant]
     Active Substance: LORAZEPAM
     Indication: ANXIETY
     Dosage: REQUIRED DAILY AS NEEDED LORAZEPAM FOR ANXIETY
     Route: 065
  15. DIVALPROEX?ER [Concomitant]
     Dosage: 1250 MILLIGRAM DAILY; AT BEDTIME
     Route: 065
  16. LITHIUM. [Concomitant]
     Active Substance: LITHIUM
     Indication: SCHIZOAFFECTIVE DISORDER BIPOLAR TYPE
     Dosage: 600 MILLIGRAM DAILY;
     Route: 065
  17. HALOPERIDOL. [Suspect]
     Active Substance: HALOPERIDOL
     Indication: SCHIZOAFFECTIVE DISORDER
     Route: 030
  18. DIPHENHYDRAMINE. [Suspect]
     Active Substance: DIPHENHYDRAMINE
     Indication: EXTRAPYRAMIDAL DISORDER
     Dosage: DIPHENHYDRAMINE 25 MG DAILY AND 50 MG AT BEDTIME
     Route: 065
  19. SERTRALINE [Suspect]
     Active Substance: SERTRALINE HYDROCHLORIDE
     Indication: SCHIZOAFFECTIVE DISORDER
     Dosage: 100 MILLIGRAM DAILY;
     Route: 065
  20. OLANZAPINE. [Suspect]
     Active Substance: OLANZAPINE
     Indication: SCHIZOAFFECTIVE DISORDER BIPOLAR TYPE
     Dosage: SHE HAD RECEIVED 5 MG OF IM OLANZAPINE THE NIGHT BEFORE DEVELOPING CATATONIC SYMPTOMS.
     Route: 030
  21. CLONIDINE. [Concomitant]
     Active Substance: CLONIDINE
     Indication: AGGRESSION
     Dosage: .1 MILLIGRAM DAILY; AT BEDTIME
     Route: 065
  22. LITHIUM. [Concomitant]
     Active Substance: LITHIUM
     Dosage: 900 MILLIGRAM DAILY; INCREASED TO 300 MG DAILY AND 600 MG AT BEDTIME
     Route: 065
  23. LURASIDONE [Suspect]
     Active Substance: LURASIDONE
     Dosage: 60 MILLIGRAM DAILY;
     Route: 065
  24. BENZTROPINE. [Concomitant]
     Active Substance: BENZTROPINE
     Indication: EXTRAPYRAMIDAL DISORDER
     Dosage: 1 MILLIGRAM DAILY;
     Route: 065
  25. DIVALPROEX?ER [Concomitant]
     Dosage: 750 MILLIGRAM DAILY; AT BEDTIME
     Route: 065

REACTIONS (12)
  - Extrapyramidal disorder [Unknown]
  - Delirium [Unknown]
  - Catatonia [Recovered/Resolved]
  - Dry mouth [Unknown]
  - Retching [Unknown]
  - Mania [Unknown]
  - Salivary hypersecretion [Unknown]
  - Drug ineffective [Unknown]
  - Musculoskeletal stiffness [Unknown]
  - Akathisia [Unknown]
  - Mental status changes [Recovered/Resolved]
  - Restlessness [Unknown]
